FAERS Safety Report 5225799-6 (Version None)
Quarter: 2007Q1

REPORT INFORMATION
  Report Type: 
  Country: None (occurrence: None)
  Receive Date: 20070130
  Receipt Date: 20070130
  Transmission Date: 20070707
  Serious: Yes (Other)
  Sender: FDA-Public Use
  Company Number: None

PATIENT
  Age: 53 Year
  Sex: Male
  Weight: 122.4712 kg

DRUGS (1)
  1. FAMOTIDINE [Suspect]
     Indication: STOMACH DISCOMFORT
     Dosage: 1 TABLET  TWICE DAILY  PO
     Route: 048
     Dates: start: 20070120, end: 20070121

REACTIONS (2)
  - OEDEMA PERIPHERAL [None]
  - RASH [None]
